FAERS Safety Report 4574127-8 (Version None)
Quarter: 2005Q1

REPORT INFORMATION
  Report Type: 
  Country: None (occurrence: None)
  Receive Date: 20050204
  Receipt Date: 20041115
  Transmission Date: 20050727
  Serious: Yes (Disabling, Other)
  Sender: FDA-Public Use
  Company Number: 2004094321

PATIENT
  Age: 64 Year
  Sex: Male
  Weight: 113.3993 kg

DRUGS (7)
  1. CELEBREX [Suspect]
     Indication: ARTHRITIS
     Dosage: 200 MG (200 MG, 1 IN 1 D), ORAL
     Route: 048
  2. AMLODIPINE BESYLATE [Concomitant]
  3. ATENOLOL [Suspect]
  4. LOSARTAN POTASSIUM [Concomitant]
  5. HYDROCHLOROTHIAZIDE (HYDROCHLORTHIAZIDE0 [Concomitant]
  6. TAMSULOSIN (TAMSULOSIN) [Concomitant]
  7. ASASANTIN (ACETYLSALICYLIC ACID, DIPYRIDAMOLE) [Concomitant]

REACTIONS (4)
  - ARTHRALGIA [None]
  - DEPRESSION [None]
  - LACUNAR INFARCTION [None]
  - PAIN [None]
